FAERS Safety Report 4703220-1 (Version None)
Quarter: 2005Q2

REPORT INFORMATION
  Report Type: 
  Country: None (occurrence: None)
  Receive Date: 20050628
  Receipt Date: 20050616
  Transmission Date: 20051028
  Serious: Yes (Hospitalization)
  Sender: FDA-Public Use
  Company Number: 2005088461

PATIENT
  Age: 31 Year
  Sex: Male
  Weight: 80 kg

DRUGS (4)
  1. CELEBREX [Suspect]
     Indication: MIGRAINE WITHOUT AURA
     Dosage: 200 MG (200 MG, 1 IN 1 D), ORAL
     Route: 048
  2. NEUROMET (OXIRACETAM) [Suspect]
     Indication: MIGRAINE WITHOUT AURA
     Dosage: ORAL
     Route: 048
  3. AMITRIPTYLINE HCL [Suspect]
     Indication: MIGRAINE WITHOUT AURA
     Dosage: ORAL
     Route: 048
  4. ALL OTHER THERAPEUTIC PRODUCTS (ALL OTHER THERAPEUTIC PRODUCTS) [Suspect]
     Indication: MIGRAINE WITHOUT AURA
     Dosage: ORAL
     Route: 048

REACTIONS (5)
  - DRUG HYPERSENSITIVITY [None]
  - HEPATITIS C VIRUS [None]
  - PRURITUS [None]
  - RASH [None]
  - SCRATCH [None]
